FAERS Safety Report 22596333 (Version 2)
Quarter: 2023Q2

REPORT INFORMATION
  Report Type: Report from Study
  Country: US (occurrence: US)
  Receive Date: 20230613
  Receipt Date: 20230614
  Transmission Date: 20230721
  Serious: Yes (Other)
  Sender: FDA-Public Use
  Company Number: US-JNJFOC-20230629379

PATIENT

DRUGS (1)
  1. EUCALYPTOL , MENTHOL, METHYL SALICYLATE ,THYMOL [Suspect]
     Active Substance: EUCALYPTOL\MENTHOL\METHYL SALICYLATE\THYMOL
     Indication: Product used for unknown indication
     Route: 048

REACTIONS (2)
  - Choking [Unknown]
  - Dysgeusia [Unknown]
